FAERS Safety Report 11797944 (Version 1)
Quarter: 2015Q4

REPORT INFORMATION
  Report Type: Spontaneous
  Country: US (occurrence: US)
  Receive Date: 20151203
  Receipt Date: 20151203
  Transmission Date: 20160305
  Serious: Yes (Death)
  Sender: FDA-Public Use
  Company Number: US-CELGENE-USA-2015117608

PATIENT
  Age: 19 Year
  Sex: Female
  Weight: 60.84 kg

DRUGS (1)
  1. POMALYST [Suspect]
     Active Substance: POMALIDOMIDE
     Indication: ADRENOCORTICAL CARCINOMA
     Route: 048
     Dates: start: 201501

REACTIONS (1)
  - Adrenocortical carcinoma [Fatal]

NARRATIVE: CASE EVENT DATE: 20151029
